FAERS Safety Report 6820953-1 (Version None)
Quarter: 2010Q3

REPORT INFORMATION
  Report Type: 
  Country: None (occurrence: None)
  Receive Date: 20100707
  Receipt Date: 20080717
  Transmission Date: 20110219
  Serious: Yes (Death, Other)
  Sender: FDA-Public Use
  Company Number: US-PFIZER INC-2007000696

PATIENT
  Sex: Male
  Weight: 76 kg

DRUGS (11)
  1. ZOLOFT [Suspect]
     Indication: INSOMNIA
     Route: 048
     Dates: start: 20050513, end: 20050524
  2. ZOLOFT [Suspect]
     Indication: DEPRESSION
  3. ZOLOFT [Suspect]
     Indication: STRESS
  4. HYZAAR [Concomitant]
     Dosage: 100/25MG
     Route: 048
  5. LIPITOR [Concomitant]
     Route: 048
  6. XANAX [Concomitant]
     Indication: ANXIETY
     Dosage: 0.25 TO 0.5MG
     Route: 048
  7. ACETYLSALICYLIC ACID [Concomitant]
  8. VIAGRA [Concomitant]
     Indication: ERECTILE DYSFUNCTION
     Dosage: AS NEEDED
  9. MULTI-VITAMINS [Concomitant]
  10. FISH OIL [Concomitant]
  11. IBUPROFEN [Concomitant]
     Dosage: AS NEEDED

REACTIONS (4)
  - ABNORMAL BEHAVIOUR [None]
  - COMPLETED SUICIDE [None]
  - CONFUSIONAL STATE [None]
  - LETHARGY [None]
